FAERS Safety Report 23630507 (Version 4)
Quarter: 2024Q3

REPORT INFORMATION
  Report Type: Report from Study
  Country: US (occurrence: US)
  Receive Date: 20240314
  Receipt Date: 20240706
  Transmission Date: 20241016
  Serious: Yes (Hospitalization, Other)
  Sender: ABBVIE
  Company Number: US-ABBVIE-4767732

PATIENT
  Age: 46 Year
  Sex: Male

DRUGS (3)
  1. HUMIRA [Suspect]
     Active Substance: ADALIMUMAB
     Indication: Rheumatoid arthritis
     Dosage: CITRATE FREE, FORM STRENGTH 40 MG
     Route: 058
     Dates: start: 20200214, end: 202406
  2. HUMIRA [Suspect]
     Active Substance: ADALIMUMAB
     Dosage: CITRATE FREE FORM STRENGTH 40MG
     Route: 058
     Dates: start: 20200207
  3. METHOTREXATE [Suspect]
     Active Substance: METHOTREXATE
     Indication: Product used for unknown indication
     Route: 065

REACTIONS (14)
  - Autoimmune hepatitis [Not Recovered/Not Resolved]
  - Cystitis [Recovered/Resolved]
  - Liver function test increased [Not Recovered/Not Resolved]
  - Nephrolithiasis [Recovered/Resolved]
  - Knee operation [Recovered/Resolved]
  - Hepatic enzyme increased [Unknown]
  - Abdominal pain [Unknown]
  - Chromaturia [Recovered/Resolved]
  - Cardiac disorder [Unknown]
  - Pancreatic disorder [Unknown]
  - Amnesia [Unknown]
  - Oropharyngeal pain [Unknown]
  - Metabolic surgery [Recovered/Resolved]
  - Metabolic surgery [Recovered/Resolved]

NARRATIVE: CASE EVENT DATE: 20200214
